FAERS Safety Report 5358517-1 (Version None)
Quarter: 2007Q2

REPORT INFORMATION
  Report Type: 
  Country: None (occurrence: None)
  Receive Date: 20070615
  Receipt Date: 20070604
  Transmission Date: 20071010
  Serious: Yes (Hospitalization, Other)
  Sender: FDA-Public Use
  Company Number: FR-JNJFOC-20070501076

PATIENT
  Age: 45 Year
  Sex: Female
  Weight: 60 kg

DRUGS (4)
  1. REMICADE [Suspect]
     Indication: PSORIATIC ARTHROPATHY
     Dosage: 1 INFUSION RECEIVED
     Route: 042
  2. METHOTREXATE [Concomitant]
     Indication: PSORIATIC ARTHROPATHY
  3. LOXEN [Concomitant]
     Indication: HYPERTENSION
  4. SPECIAFOLDINE [Concomitant]
     Indication: PSORIATIC ARTHROPATHY

REACTIONS (4)
  - HEADACHE [None]
  - HYPERTENSION [None]
  - NEUROLOGICAL SYMPTOM [None]
  - PRURITUS [None]
